FAERS Safety Report 11456287 (Version 1)
Quarter: 2015Q3

REPORT INFORMATION
  Report Type: Spontaneous
  Country: KR (occurrence: KR)
  Receive Date: 20150903
  Receipt Date: 20150903
  Transmission Date: 20151125
  Serious: Yes (Other)
  Sender: FDA-Public Use
  Company Number: KR-FRESENIUS KABI-FK201504165

PATIENT
  Age: 83 Year
  Sex: Female
  Weight: 56 kg

DRUGS (2)
  1. PROPOFOL (MANUFACTURER UNKNOWN) [Suspect]
     Active Substance: PROPOFOL
     Indication: GENERAL ANAESTHESIA
     Route: 041
  2. LIDOCAIN [Suspect]
     Active Substance: LIDOCAINE
     Indication: GENERAL ANAESTHESIA
     Route: 041

REACTIONS (2)
  - Blood pressure decreased [Recovered/Resolved]
  - Sinus node dysfunction [Recovered/Resolved]
